FAERS Safety Report 14945808 (Version 14)
Quarter: 2022Q1

REPORT INFORMATION
  Report Type: Report from Study
  Country: DE (occurrence: None)
  Receive Date: 20180529
  Receipt Date: 20220321
  Transmission Date: 20220424
  Serious: Yes (Hospitalization, Other)
  Sender: FDA-Public Use
  Company Number: DE-ROCHE-2124968

PATIENT
  Age: 62 Year
  Sex: Female
  Weight: 52.5 kg

DRUGS (32)
  1. ATEZOLIZUMAB [Suspect]
     Active Substance: ATEZOLIZUMAB
     Indication: Ovarian epithelial cancer
     Dosage: START DATE OF MOST RECENT DOSE OF STUDY DRUG PRIOR TO AE: 03/MAY/2018
     Route: 041
     Dates: start: 20180503
  2. PACLITAXEL [Suspect]
     Active Substance: PACLITAXEL
     Indication: Ovarian epithelial cancer
     Dosage: MOST RECENT DOSE OF IV PACLITAXEL (278 MG) PRIOR TO SERIOUS ADVERSE EVENT (SAE) ONSET: 03/MAY/2018
     Route: 042
     Dates: start: 20180503
  3. CARBOPLATIN [Suspect]
     Active Substance: CARBOPLATIN
     Indication: Ovarian epithelial cancer
     Dosage: MOST RECENT DOSE OF IV CARBOPLATIN (444.9 MG) PRIOR TO SERIOUS ADVERSE EVENT (SAE) ONSET: 03/MAY/201
     Route: 042
     Dates: start: 20180503
  4. CARBOPLATIN [Suspect]
     Active Substance: CARBOPLATIN
     Dosage: FOLLOW-UP CANCER THERAPY
     Route: 042
     Dates: start: 20180913, end: 20181102
  5. HYDROMORPHONE [Concomitant]
     Active Substance: HYDROMORPHONE
     Indication: Abdominal pain
     Dates: start: 20180320, end: 20180604
  6. HYDROMORPHONE [Concomitant]
     Active Substance: HYDROMORPHONE
     Indication: Pain
     Dates: start: 20180331, end: 20180604
  7. HYDROMORPHONE [Concomitant]
     Active Substance: HYDROMORPHONE
     Indication: Guillain-Barre syndrome
     Dates: start: 20180604
  8. PANTOZOL [Concomitant]
     Active Substance: PANTOPRAZOLE SODIUM
     Indication: Nausea
     Dates: start: 20180416, end: 20180618
  9. PANTOZOL [Concomitant]
     Active Substance: PANTOPRAZOLE SODIUM
     Indication: Pain
     Dates: start: 20180623
  10. MCP [Concomitant]
     Active Substance: METOCLOPRAMIDE HYDROCHLORIDE
     Indication: Nausea
     Dates: start: 20180320, end: 20180528
  11. PROPOFOL [Concomitant]
     Active Substance: PROPOFOL
     Dates: start: 20180502, end: 20180502
  12. BUTYLSCOPOLAMIN [Concomitant]
     Dates: start: 20180429, end: 20180429
  13. DIMENHYDRINATE [Concomitant]
     Active Substance: DIMENHYDRINATE
     Indication: Nausea
     Dates: start: 20180429, end: 20180429
  14. CLEMASTINE [Concomitant]
     Active Substance: CLEMASTINE
     Dates: start: 20180503, end: 20180503
  15. RANITIDINE HYDROCHLORIDE [Concomitant]
     Active Substance: RANITIDINE HYDROCHLORIDE
     Dates: start: 20180503, end: 20180503
  16. DEXAMETHASONE [Concomitant]
     Active Substance: DEXAMETHASONE
     Indication: Vomiting
     Route: 042
     Dates: start: 20180503, end: 20180503
  17. PALONOSETRON [Concomitant]
     Active Substance: PALONOSETRON
     Indication: Vomiting
     Dates: start: 20180503, end: 20180503
  18. APREPITANT [Concomitant]
     Active Substance: APREPITANT
     Indication: Vomiting
     Dates: start: 20180503, end: 20180503
  19. FLUCONAZOLE [Concomitant]
     Active Substance: FLUCONAZOLE
     Dates: start: 20180514, end: 20180517
  20. FLUCONAZOLE [Concomitant]
     Active Substance: FLUCONAZOLE
     Dates: start: 20180518, end: 20180526
  21. ANIDULAFUNGIN [Concomitant]
     Active Substance: ANIDULAFUNGIN
     Dates: start: 20180518, end: 20180518
  22. PREDNISOLONE [Concomitant]
     Active Substance: PREDNISOLONE
     Indication: General physical health deterioration
     Route: 048
     Dates: start: 20180516, end: 20180601
  23. PREDNISOLONE [Concomitant]
     Active Substance: PREDNISOLONE
     Indication: Influenza like illness
  24. MEROPENEM [Concomitant]
     Active Substance: MEROPENEM
     Indication: Antibiotic prophylaxis
     Dates: start: 20180516, end: 20180522
  25. MEROPENEM [Concomitant]
     Active Substance: MEROPENEM
     Indication: General physical health deterioration
  26. ONDANSETRON [Concomitant]
     Active Substance: ONDANSETRON
     Indication: Vomiting
     Dates: start: 20180513, end: 2019
  27. METHYLPREDNISOLONE [Concomitant]
     Active Substance: METHYLPREDNISOLONE
     Dosage: TAPER CORTICOIDS
     Route: 048
     Dates: start: 20180602, end: 20180604
  28. METHYLPREDNISOLONE [Concomitant]
     Active Substance: METHYLPREDNISOLONE
     Dosage: TAPER CORTICOIDS
     Route: 048
     Dates: start: 20180605, end: 20180606
  29. METHYLPREDNISOLONE [Concomitant]
     Active Substance: METHYLPREDNISOLONE
     Dosage: TAPER CORTICOIDS
     Route: 048
     Dates: start: 20180607, end: 20180611
  30. METAMIZOLE [Concomitant]
     Active Substance: METAMIZOLE
     Indication: Pain
     Dates: start: 20180529, end: 2019
  31. SODIUM CHLORIDE [Concomitant]
     Active Substance: SODIUM CHLORIDE
     Dosage: COMPENSATION OF ELECTROLYTES
     Dates: start: 20180525, end: 2019
  32. DORMICUM [Concomitant]
     Dates: start: 20180502, end: 20180502

REACTIONS (6)
  - General physical health deterioration [Unknown]
  - Atrial fibrillation [Recovered/Resolved]
  - Electrolyte imbalance [Recovered/Resolved]
  - Leukopenia [Recovered/Resolved]
  - Guillain-Barre syndrome [Not Recovered/Not Resolved]
  - Blood thyroid stimulating hormone decreased [Recovered/Resolved]

NARRATIVE: CASE EVENT DATE: 20180511
